FAERS Safety Report 21762340 (Version 2)
Quarter: 2025Q3

REPORT INFORMATION
  Report Type: Report from Study
  Country: US (occurrence: US)
  Receive Date: 20221221
  Receipt Date: 20250804
  Transmission Date: 20251021
  Serious: No
  Sender: SANOFI AVENTIS
  Company Number: US-SA-SAC20221220000846

PATIENT
  Age: 40 Year
  Sex: Female

DRUGS (4)
  1. DUPIXENT [Suspect]
     Active Substance: DUPILUMAB
     Indication: Dermatitis atopic
     Dosage: 300 MG, QOW
     Route: 058
     Dates: end: 20250729
  2. WEGOVY [Concomitant]
     Active Substance: SEMAGLUTIDE
  3. PROGESTERONE [Concomitant]
     Active Substance: PROGESTERONE
  4. LOSARTAN [Concomitant]
     Active Substance: LOSARTAN

REACTIONS (2)
  - Drug hypersensitivity [Unknown]
  - Drug ineffective [Unknown]

NARRATIVE: CASE EVENT DATE: 20250701
